FAERS Safety Report 10096711 (Version 2)
Quarter: 2014Q3

REPORT INFORMATION
  Report Type: Spontaneous
  Country: FR (occurrence: FR)
  Receive Date: 20140422
  Receipt Date: 20140808
  Transmission Date: 20150326
  Serious: Yes (Hospitalization)
  Sender: FDA-Public Use
  Company Number: PHHY2014FR047497

PATIENT
  Age: 74 Year
  Sex: Male

DRUGS (8)
  1. LASILIX [Suspect]
     Active Substance: FUROSEMIDE
     Dosage: UNK UKN, UNK
     Route: 048
  2. PLAVIX [Suspect]
     Active Substance: CLOPIDOGREL BISULFATE
     Dosage: UNK UKN, UNK
     Route: 048
     Dates: start: 20131120
  3. HYDROCHLOROTHIAZIDE\VALSARTAN [Suspect]
     Active Substance: HYDROCHLOROTHIAZIDE\VALSARTAN
     Dosage: UNK UKN, UNK
     Route: 048
  4. VERAPAMIL [Suspect]
     Active Substance: VERAPAMIL HYDROCHLORIDE
     Dosage: UNK UKN, UNK
     Route: 048
  5. INEGY [Suspect]
     Active Substance: EZETIMIBE\SIMVASTATIN
     Dosage: UNK UKN, UNK
     Route: 048
  6. INEXIUM [Suspect]
     Active Substance: ESOMEPRAZOLE
     Dosage: UNK UKN, UNK
     Route: 048
  7. MONICOR [Suspect]
     Active Substance: ISOSORBIDE MONONITRATE
     Dosage: UNK UKN, UNK
     Route: 048
  8. KARDEGIC [Suspect]
     Active Substance: ASPIRIN LYSINE
     Dosage: UNK UKN, UNK
     Route: 048
     Dates: start: 20131120, end: 20131220

REACTIONS (1)
  - Eczema [Recovering/Resolving]

NARRATIVE: CASE EVENT DATE: 201312
